FAERS Safety Report 5519987-9 (Version None)
Quarter: 2007Q4

REPORT INFORMATION
  Report Type: 
  Country: None (occurrence: None)
  Receive Date: 20071116
  Receipt Date: 20071109
  Transmission Date: 20080405
  Serious: Yes (Other)
  Sender: FDA-Public Use
  Company Number: FR-WYE-H01191207

PATIENT
  Sex: Male
  Weight: 80 kg

DRUGS (5)
  1. BENEFIX [Suspect]
     Indication: FACTOR IX DEFICIENCY
     Route: 042
     Dates: start: 20041110, end: 20041110
  2. BENEFIX [Suspect]
     Route: 042
     Dates: start: 20041111
  3. NORVIR [Concomitant]
  4. TRUVADA [Concomitant]
  5. INVIRASE [Concomitant]

REACTIONS (1)
  - DRUG INEFFECTIVE [None]
